FAERS Safety Report 8115310-4 (Version None)
Quarter: 2012Q1

REPORT INFORMATION
  Report Type: 
  Country: None (occurrence: None)
  Receive Date: 20120201
  Receipt Date: 20120120
  Transmission Date: 20120608
  Serious: Yes (Hospitalization)
  Sender: FDA-Public Use
  Company Number: OMPQ-PR-1201S-0121

PATIENT
  Age: 18 Year
  Sex: Male
  Weight: 156.6 kg

DRUGS (2)
  1. OMNIPAQUE 70 [Suspect]
     Indication: FABRY'S DISEASE
     Dosage: SINGLE DOSE, INTRAVENOUS
     Route: 042
     Dates: start: 20111215, end: 20111215
  2. FABRAZYME [Suspect]
     Indication: FABRY'S DISEASE
     Dosage: 1 MG/KG, Q4W, INTRAVENOUS
     Route: 042
     Dates: start: 20081212

REACTIONS (2)
  - PAIN [None]
  - PARAESTHESIA [None]
